FAERS Safety Report 6233905-X (Version None)
Quarter: 2009Q2

REPORT INFORMATION
  Report Type: 
  Country: None (occurrence: None)
  Receive Date: 20090618
  Receipt Date: 20090608
  Transmission Date: 20091009
  Serious: Yes (Other)
  Sender: FDA-Public Use
  Company Number: PHEH2009US05876

PATIENT
  Sex: Male

DRUGS (1)
  1. EXELON [Suspect]
     Dosage: UNK
     Dates: end: 20090501

REACTIONS (5)
  - ANXIETY [None]
  - CONFUSIONAL STATE [None]
  - LUNG DISORDER [None]
  - MUSCULAR WEAKNESS [None]
  - MYALGIA [None]
